FAERS Safety Report 7794838-0 (Version None)
Quarter: 2011Q4

REPORT INFORMATION
  Report Type: 
  Country: None (occurrence: None)
  Receive Date: 20111004
  Receipt Date: 20110920
  Transmission Date: 20120403
  Serious: Yes (Hospitalization, Other)
  Sender: FDA-Public Use
  Company Number: PHHY2011EC84434

PATIENT
  Sex: Male

DRUGS (1)
  1. DIOVAN [Suspect]
     Indication: HYPERTENSION
     Dosage: 160 MG, DAILY
     Route: 048

REACTIONS (7)
  - URINARY RETENTION [None]
  - VOMITING [None]
  - COLON CANCER [None]
  - DEHYDRATION [None]
  - SYNCOPE [None]
  - BLOOD PRESSURE DECREASED [None]
  - LYMPHOMA [None]
